FAERS Safety Report 9155401 (Version 3)
Quarter: 2013Q2

REPORT INFORMATION
  Report Type: Report from Study
  Country: JP (occurrence: JP)
  Receive Date: 20130311
  Receipt Date: 20130412
  Transmission Date: 20140414
  Serious: Yes (Death)
  Sender: FDA-Public Use
  Company Number: JP-JNJFOC-20130301750

PATIENT
  Age: 87 Year
  Sex: Female
  Weight: 33 kg

DRUGS (11)
  1. ONEDURO [Suspect]
     Indication: CANCER PAIN
     Route: 062
     Dates: start: 20130131, end: 20130217
  2. OXINORM (OXYCODONE HYDROCHLORIDE) [Concomitant]
     Indication: CANCER PAIN
     Route: 048
     Dates: start: 20120212, end: 20120212
  3. OXINORM (OXYCODONE HYDROCHLORIDE) [Concomitant]
     Indication: CANCER PAIN
     Route: 048
     Dates: start: 20120211, end: 20120211
  4. OXINORM (OXYCODONE HYDROCHLORIDE) [Concomitant]
     Indication: CANCER PAIN
     Route: 048
     Dates: start: 20120209, end: 20120210
  5. OXINORM (OXYCODONE HYDROCHLORIDE) [Concomitant]
     Indication: CANCER PAIN
     Route: 048
     Dates: start: 20120208, end: 20120208
  6. OXINORM (OXYCODONE HYDROCHLORIDE) [Concomitant]
     Indication: CANCER PAIN
     Route: 048
     Dates: start: 20120206, end: 20120207
  7. OXINORM (OXYCODONE HYDROCHLORIDE) [Concomitant]
     Indication: CANCER PAIN
     Route: 048
     Dates: start: 20120131, end: 20120131
  8. OXINORM (OXYCODONE HYDROCHLORIDE) [Concomitant]
     Indication: CANCER PAIN
     Route: 048
     Dates: start: 20120205, end: 20120205
  9. OXINORM (OXYCODONE HYDROCHLORIDE) [Concomitant]
     Indication: CANCER PAIN
     Route: 048
     Dates: start: 20120203, end: 20120203
  10. OXINORM (OXYCODONE HYDROCHLORIDE) [Concomitant]
     Indication: CANCER PAIN
     Route: 048
     Dates: start: 20120202, end: 20120202
  11. VOLTAREN [Concomitant]
     Indication: CANCER PAIN
     Route: 054
     Dates: start: 20120116, end: 20120217

REACTIONS (3)
  - Bladder cancer [Fatal]
  - Wrong technique in drug usage process [Unknown]
  - Drug intolerance [Unknown]
